FAERS Safety Report 16413249 (Version 1)
Quarter: 2019Q2

REPORT INFORMATION
  Report Type: Spontaneous
  Country: CA (occurrence: CA)
  Receive Date: 20190611
  Receipt Date: 20190611
  Transmission Date: 20190711
  Serious: Yes (Other)
  Sender: FDA-Public Use
  Company Number: CA-AUROBINDO-AUR-APL-2019-028103

PATIENT

DRUGS (2)
  1. AURO-SERTRALINE CAPSULES [Suspect]
     Active Substance: SERTRALINE HYDROCHLORIDE
     Indication: ANXIETY
  2. AURO-SERTRALINE CAPSULES [Suspect]
     Active Substance: SERTRALINE HYDROCHLORIDE
     Indication: DEPRESSION
     Dosage: 100 MILLIGRAM, 1 EVERY 1 DAY
     Route: 048

REACTIONS (3)
  - Drug ineffective [Recovering/Resolving]
  - Product substitution issue [Recovering/Resolving]
  - Dyspepsia [Recovering/Resolving]
